FAERS Safety Report 12409641 (Version 2)
Quarter: 2016Q3

REPORT INFORMATION
  Report Type: Report from Study
  Country: CO (occurrence: CO)
  Receive Date: 20160526
  Receipt Date: 20160708
  Transmission Date: 20161109
  Serious: Yes (Hospitalization)
  Sender: FDA-Public Use
  Company Number: CO-INCYTE CORPORATION-2016IN003124

PATIENT
  Sex: Female
  Weight: 55 kg

DRUGS (2)
  1. JAKAFI [Suspect]
     Active Substance: RUXOLITINIB
     Indication: PRIMARY MYELOFIBROSIS
     Dosage: 5 MG, ^FIVE DAILY^
     Route: 048
     Dates: start: 20140509
  2. JAKAFI [Suspect]
     Active Substance: RUXOLITINIB
     Dosage: 5 MG, BID3SDO (IN THE MORNING AND AT NIGHT)
     Route: 048

REACTIONS (6)
  - Blood uric acid increased [Unknown]
  - Splenomegaly [Unknown]
  - Somnolence [Unknown]
  - Anaemia [Unknown]
  - Inflammation [Unknown]
  - Asthenia [Unknown]
